FAERS Safety Report 19665771 (Version 1)
Quarter: 2021Q3

REPORT INFORMATION
  Report Type: Spontaneous
  Country: US (occurrence: US)
  Receive Date: 20210806
  Receipt Date: 20210806
  Transmission Date: 20211014
  Serious: Yes (Other)
  Sender: FDA-Public Use
  Company Number: US-ACCORD-219037

PATIENT
  Age: 57 Year
  Sex: Female

DRUGS (6)
  1. CYTOXAN [Suspect]
     Active Substance: CYCLOPHOSPHAMIDE
     Indication: BREAST CANCER
     Dates: start: 20180313, end: 20180518
  2. APREPITANT. [Suspect]
     Active Substance: APREPITANT
     Indication: BREAST CANCER
     Dates: start: 20180313, end: 20180518
  3. NEUBSTA [PEGFILGRASTIM] [Suspect]
     Active Substance: PEGFILGRASTIM
     Indication: BREAST CANCER
     Dates: start: 20180313, end: 20180518
  4. ALOXI [Suspect]
     Active Substance: PALONOSETRON HYDROCHLORIDE
     Indication: BREAST CANCER
     Dates: start: 20180313, end: 20180518
  5. DOCETAXEL. [Suspect]
     Active Substance: DOCETAXEL
     Indication: BREAST CANCER
     Dates: start: 20180313, end: 20180518
  6. DECADRON [Suspect]
     Active Substance: DEXAMETHASONE
     Indication: BREAST CANCER
     Dates: start: 20180313, end: 20180518

REACTIONS (1)
  - Alopecia [Not Recovered/Not Resolved]

NARRATIVE: CASE EVENT DATE: 201811
